FAERS Safety Report 17397062 (Version 2)
Quarter: 2020Q1

REPORT INFORMATION
  Report Type: Spontaneous
  Country: CA (occurrence: CA)
  Receive Date: 20200210
  Receipt Date: 20200313
  Transmission Date: 20200409
  Serious: Yes (Other)
  Sender: FDA-Public Use
  Company Number: CA-PFIZER INC-2020055389

PATIENT
  Age: 80 Year
  Sex: Female

DRUGS (1)
  1. BEVACIZUMAB. [Suspect]
     Active Substance: BEVACIZUMAB
     Indication: RETINAL VEIN OCCLUSION
     Dosage: 1.25 MG, UNK [1 EVERY 6 WEEKS]
     Route: 050

REACTIONS (3)
  - Product use in unapproved indication [Unknown]
  - Endophthalmitis [Not Recovered/Not Resolved]
  - Off label use [Unknown]
